FAERS Safety Report 6673018-6 (Version None)
Quarter: 2010Q2

REPORT INFORMATION
  Report Type: 
  Country: None (occurrence: None)
  Receive Date: 20100408
  Receipt Date: 20100401
  Transmission Date: 20101027
  Serious: Yes (Other)
  Sender: FDA-Public Use
  Company Number: B0645483A

PATIENT
  Sex: Male

DRUGS (14)
  1. FLIXONASE [Suspect]
     Dosage: 200MCG PER DAY
     Route: 045
  2. SERETIDE [Suspect]
     Indication: ASTHMA
     Dosage: 2PUFF TWICE PER DAY
     Route: 055
  3. DILTIAZEM HCL [Concomitant]
  4. SINGULAIR [Concomitant]
  5. CLOPIDOGREL [Concomitant]
  6. FYBOGEL [Concomitant]
  7. ATORVASTATIN CALCIUM [Concomitant]
  8. THEOPHYLLINE [Concomitant]
  9. ALFUZOSIN HCL [Concomitant]
  10. AVODART [Concomitant]
  11. ZYRTEC [Concomitant]
  12. METFORMIN [Concomitant]
  13. CETRABEN [Concomitant]
  14. PROTOPIC [Concomitant]

REACTIONS (8)
  - ASTHENIA [None]
  - BLOOD CORTISOL DECREASED [None]
  - FATIGUE [None]
  - HAEMOGLOBIN DECREASED [None]
  - HEART RATE INCREASED [None]
  - MUSCULAR WEAKNESS [None]
  - PARAESTHESIA [None]
  - SUPRAVENTRICULAR TACHYCARDIA [None]
